FAERS Safety Report 7011033-3 (Version None)
Quarter: 2010Q3

REPORT INFORMATION
  Report Type: 
  Country: None (occurrence: None)
  Receive Date: 20100922
  Receipt Date: 20100922
  Transmission Date: 20110219
  Serious: Yes (Hospitalization)
  Sender: FDA-Public Use
  Company Number: None

PATIENT
  Age: 29 Year
  Sex: Female
  Weight: 78.9259 kg

DRUGS (1)
  1. CRESTOR [Suspect]
     Indication: BLOOD CHOLESTEROL
     Dosage: 10 MG PILL DAILY PO
     Route: 048
     Dates: start: 20090405, end: 20090412

REACTIONS (3)
  - CHEST PAIN [None]
  - DYSPEPSIA [None]
  - INSOMNIA [None]
